FAERS Safety Report 13423169 (Version 2)
Quarter: 2017Q2

REPORT INFORMATION
  Report Type: Report from Study
  Country: US (occurrence: US)
  Receive Date: 20170410
  Receipt Date: 20170503
  Transmission Date: 20170830
  Serious: Yes (Other)
  Sender: FDA-Public Use
  Company Number: US-009507513-1703USA010544

PATIENT
  Age: 60 Year
  Sex: Female

DRUGS (2)
  1. HEXADROL [Suspect]
     Active Substance: DEXAMETHASONE
     Indication: METASTASES TO CENTRAL NERVOUS SYSTEM
     Dosage: 4 MG, TWICE DAILY
     Route: 048
     Dates: start: 201611, end: 20161222
  2. PEMBROLIZUMAB. [Suspect]
     Active Substance: PEMBROLIZUMAB
     Indication: NON-SMALL CELL LUNG CANCER
     Dosage: UNK, EVERY THREE WEEKS
     Route: 042
     Dates: start: 2016

REACTIONS (13)
  - Sinusitis [Recovered/Resolved]
  - Swelling face [Recovered/Resolved]
  - Rash pruritic [Recovering/Resolving]
  - Local swelling [Recovered/Resolved]
  - Arthritis [Recovered/Resolved]
  - Musculoskeletal discomfort [Recovered/Resolved]
  - Tumour pain [Recovered/Resolved]
  - Insomnia [Recovered/Resolved]
  - Alopecia [Recovered/Resolved]
  - Hypersensitivity [Not Recovered/Not Resolved]
  - Weight increased [Recovered/Resolved]
  - Muscular weakness [Recovered/Resolved]
  - Fatigue [Not Recovered/Not Resolved]

NARRATIVE: CASE EVENT DATE: 2016
